FAERS Safety Report 23341734 (Version 1)
Quarter: 2023Q4

REPORT INFORMATION
  Report Type: Spontaneous
  Country: DK (occurrence: DK)
  Receive Date: 20231227
  Receipt Date: 20231227
  Transmission Date: 20240109
  Serious: Yes (Other)
  Sender: FDA-Public Use
  Company Number: None

PATIENT
  Age: 42 Year
  Sex: Female
  Weight: 68 kg

DRUGS (1)
  1. KYLEENA [Suspect]
     Active Substance: LEVONORGESTREL
     Indication: Contraception
     Dosage: 17.5?G/DAY
     Route: 015
     Dates: start: 202210, end: 202309

REACTIONS (7)
  - Menstrual disorder [Recovering/Resolving]
  - Acne [Recovering/Resolving]
  - Depressed mood [Recovering/Resolving]
  - Irritability [Not Recovered/Not Resolved]
  - Loss of libido [Recovering/Resolving]
  - Headache [Recovered/Resolved]
  - Suicidal ideation [Recovered/Resolved]

NARRATIVE: CASE EVENT DATE: 20221101
